FAERS Safety Report 6424517-3 (Version None)
Quarter: 2009Q4

REPORT INFORMATION
  Report Type: 
  Country: None (occurrence: None)
  Receive Date: 20091029
  Receipt Date: 20091014
  Transmission Date: 20100525
  Serious: Yes (Life-Threatening, Disabling, Other)
  Sender: FDA-Public Use
  Company Number: AUR-APL-2009-00922

PATIENT
  Age: 25 Year
  Sex: Male

DRUGS (3)
  1. PAROXETINE HCL [Suspect]
     Indication: DEPRESSION
     Dosage: 30MG, DAILY, ORAL
     Route: 048
     Dates: start: 20020501, end: 20031001
  2. ZOPICLONE [Suspect]
     Indication: SLEEP DISORDER
     Dosage: 15MG, DAILY, ORAL
     Route: 048
     Dates: start: 20020901, end: 20030901
  3. DOTHIEPIN HYDROCHLORIDE [Concomitant]

REACTIONS (11)
  - ALCOHOL USE [None]
  - ANXIETY [None]
  - DRUG DOSE OMISSION [None]
  - FAMILY STRESS [None]
  - HEADACHE [None]
  - HOMICIDE [None]
  - HYPERHIDROSIS [None]
  - NAUSEA [None]
  - NIGHTMARE [None]
  - SOMNAMBULISM [None]
  - TREMOR [None]
